FAERS Safety Report 9260127 (Version 1)
Quarter: 2013Q2

REPORT INFORMATION
  Report Type: Spontaneous
  Country: US (occurrence: US)
  Receive Date: 20130429
  Receipt Date: 20130429
  Transmission Date: 20140414
  Serious: Yes (Hospitalization)
  Sender: FDA-Public Use
  Company Number: US-BAYER-2013-051807

PATIENT
  Age: 31 Year
  Sex: Female
  Weight: 80 kg

DRUGS (5)
  1. YAZ [Suspect]
  2. VENTOLIN [Concomitant]
     Dosage: UNK
     Dates: start: 20091218
  3. LIPITOR [Concomitant]
     Indication: HYPERLIPIDAEMIA
  4. PROTONIX [Concomitant]
  5. ERGOCALCIFEROL [Concomitant]

REACTIONS (2)
  - Cerebrovascular accident [None]
  - Basal ganglia infarction [None]
